FAERS Safety Report 5852683-7 (Version None)
Quarter: 2008Q3

REPORT INFORMATION
  Report Type: 
  Country: None (occurrence: None)
  Receive Date: 20080819
  Receipt Date: 20080819
  Transmission Date: 20090109
  Serious: Yes (Hospitalization)
  Sender: FDA-Public Use
  Company Number: None

PATIENT
  Sex: Male
  Weight: 88.3 kg

DRUGS (2)
  1. PEMETREXED [Suspect]
     Indication: PROSTATE CANCER
     Dosage: 1065 MG Q 21 DAYS IV
     Route: 042
     Dates: start: 20080702
  2. OXALIPLATIN [Suspect]
     Indication: PROSTATE CANCER
     Dosage: 256 MG Q 21 DAYS IV
     Route: 042
     Dates: start: 20080702

REACTIONS (1)
  - CELLULITIS [None]
